FAERS Safety Report 18407970 (Version 1)
Quarter: 2020Q4

REPORT INFORMATION
  Report Type: Spontaneous
  Country: DE (occurrence: DE)
  Receive Date: 20201020
  Receipt Date: 20201020
  Transmission Date: 20210114
  Serious: Yes (Other)
  Sender: FDA-Public Use
  Company Number: DE-PFIZER INC-2020401845

PATIENT
  Age: 58 Year
  Sex: Male
  Weight: 76 kg

DRUGS (16)
  1. BISOPROLOL [Concomitant]
     Active Substance: BISOPROLOL
     Dosage: 2.5 MG, 1X/DAY
  2. ATORVASTATIN [Concomitant]
     Active Substance: ATORVASTATIN
     Dosage: 40 MG, 1X/DAY
  3. NOVORAPID [Concomitant]
     Active Substance: INSULIN ASPART
     Indication: DIABETES MELLITUS MANAGEMENT
     Dosage: UNK
  4. NEPHROTRANS [Concomitant]
     Active Substance: SODIUM BICARBONATE
     Dosage: 2520 MG, 1X/DAY
  5. ARANESP [Concomitant]
     Active Substance: DARBEPOETIN ALFA
     Dosage: 20 UG, WEEKLY
     Route: 058
  6. PANTOPRAZOL [PANTOPRAZOLE] [Concomitant]
     Active Substance: PANTOPRAZOLE
     Dosage: 40 MG, 1X/DAY
  7. ASPIRIN. [Concomitant]
     Active Substance: ASPIRIN
     Dosage: 100 MG, 1X/DAY
  8. ATORVASTATIN CALCIUM. [Suspect]
     Active Substance: ATORVASTATIN CALCIUM
     Dosage: 40 UG, 1X/DAY
  9. CANDESARTAN. [Concomitant]
     Active Substance: CANDESARTAN
     Dosage: 4 MG, 1X/DAY
  10. ARANESP [Concomitant]
     Active Substance: DARBEPOETIN ALFA
     Dosage: UNK, WEEKLY
     Route: 040
     Dates: start: 20190411, end: 20190412
  11. SARTAN [Concomitant]
     Active Substance: LOSARTAN POTASSIUM
     Dosage: 4 MG
  12. TORASEMID [Concomitant]
     Active Substance: TORSEMIDE
     Dosage: 10 MG, 1X/DAY
  13. CHOLECALCIFEROL [Concomitant]
     Active Substance: CHOLECALCIFEROL
     Dosage: 1000 IU, 1X/DAY
  14. TICAGRELOR. [Concomitant]
     Active Substance: TICAGRELOR
     Dosage: 90 MG, 1X/DAY
     Dates: end: 202009
  15. VELTASSA [Suspect]
     Active Substance: PATIROMER
     Dosage: 8.4 G
     Route: 048
  16. LEVEMIR [Concomitant]
     Active Substance: INSULIN DETEMIR
     Dosage: 2 X 18 IU
     Route: 058

REACTIONS (6)
  - Transferrin saturation decreased [Unknown]
  - Serum ferritin increased [Unknown]
  - Haematocrit decreased [Unknown]
  - Blood iron decreased [Unknown]
  - Blood potassium increased [Unknown]
  - Haemoglobin decreased [Unknown]

NARRATIVE: CASE EVENT DATE: 20181116
